FAERS Safety Report 17836320 (Version 1)
Quarter: 2020Q2

REPORT INFORMATION
  Report Type: Spontaneous
  Country: IL (occurrence: IL)
  Receive Date: 20200529
  Receipt Date: 20200529
  Transmission Date: 20200714
  Serious: No
  Sender: FDA-Public Use
  Company Number: IL-TOLMAR, INC.-19IL000168

PATIENT
  Sex: Male

DRUGS (1)
  1. ELIGARD [Suspect]
     Active Substance: LEUPROLIDE ACETATE
     Indication: HORMONE-DEPENDENT PROSTATE CANCER
     Dosage: 45 MG Q6 MONTHS
     Route: 065
     Dates: start: 201903

REACTIONS (2)
  - Intercepted product preparation error [None]
  - Device connection issue [None]

NARRATIVE: CASE EVENT DATE: 20190905
